FAERS Safety Report 9692884 (Version 2)
Quarter: 2013Q4

REPORT INFORMATION
  Report Type: Spontaneous
  Country: CH (occurrence: CH)
  Receive Date: 20131118
  Receipt Date: 20131118
  Transmission Date: 20140711
  Serious: Yes (Hospitalization)
  Sender: FDA-Public Use
  Company Number: PHHY2009CH17176

PATIENT
  Age: 36 Year
  Sex: Female

DRUGS (5)
  1. PANTOPRAZOLE [Suspect]
     Indication: GASTROOESOPHAGEAL REFLUX DISEASE
     Dosage: 20 MG, DAILY
  2. MIRTAZAPINE [Suspect]
     Dosage: 30 MG, DAILY
  3. IRON POLYMALTOSE [Concomitant]
     Indication: IRON DEFICIENCY
     Dosage: 20 MG, UNK
  4. CALCIUM [Concomitant]
     Indication: CALCIUM DEFICIENCY
  5. ALENDRONIC ACID [Concomitant]
     Dosage: 70 MG, QW

REACTIONS (12)
  - Pericardial effusion [Not Recovered/Not Resolved]
  - Asthenia [Unknown]
  - Leukopenia [Recovering/Resolving]
  - Neutropenia [Recovering/Resolving]
  - Erythropenia [Recovering/Resolving]
  - Thrombocytopenia [Recovering/Resolving]
  - Cardiomyopathy [Unknown]
  - Hypotension [Unknown]
  - Pancytopenia [Recovering/Resolving]
  - Hypermagnesaemia [Unknown]
  - Hyponatraemia [Unknown]
  - Alanine aminotransferase increased [Unknown]
